FAERS Safety Report 9248260 (Version 6)
Quarter: 2014Q2

REPORT INFORMATION
  Report Type: Report from Study
  Country: BR (occurrence: BR)
  Receive Date: 20130423
  Receipt Date: 20140415
  Transmission Date: 20141212
  Serious: Yes (Other)
  Sender: FDA-Public Use
  Company Number: BR-US-EMD SERONO, INC.-7206297

PATIENT
  Age: 27 Year
  Sex: Male

DRUGS (5)
  1. REBIF [Suspect]
     Indication: RELAPSING-REMITTING MULTIPLE SCLEROSIS
     Route: 058
     Dates: start: 20091201
  2. TYLENOL                            /00020001/ [Concomitant]
     Indication: PRODUCT USED FOR UNKNOWN INDICATION
  3. BETASERC                           /00141801/ [Concomitant]
     Indication: PRODUCT USED FOR UNKNOWN INDICATION
  4. DRAMIN [Concomitant]
     Indication: PRODUCT USED FOR UNKNOWN INDICATION
  5. RANITIDINE [Concomitant]
     Indication: PRODUCT USED FOR UNKNOWN INDICATION

REACTIONS (7)
  - Gamma-glutamyltransferase increased [Recovering/Resolving]
  - Hepatic steatosis [Not Recovered/Not Resolved]
  - Bilirubin conjugated increased [Not Recovered/Not Resolved]
  - Haemoglobin decreased [Unknown]
  - Haematocrit decreased [Unknown]
  - Alanine aminotransferase increased [Not Recovered/Not Resolved]
  - Aspartate aminotransferase increased [Recovered/Resolved]
